FAERS Safety Report 7942976-1 (Version None)
Quarter: 2011Q4

REPORT INFORMATION
  Report Type: 
  Country: None (occurrence: None)
  Receive Date: 20111128
  Receipt Date: 20111118
  Transmission Date: 20120403
  Serious: Yes (Other)
  Sender: FDA-Public Use
  Company Number: US-SANOFI-AVENTIS-2011SA076349

PATIENT
  Age: 37 Year
  Sex: Female
  Weight: 64 kg

DRUGS (3)
  1. HUMALOG [Concomitant]
  2. SOLOSTAR [Suspect]
     Dates: start: 20110601
  3. LANTUS [Suspect]
     Dosage: 6 UNITS IN AM AND 8 UNITS AT HS
     Route: 058
     Dates: start: 20110601

REACTIONS (2)
  - WEIGHT DECREASED [None]
  - BLOOD GLUCOSE DECREASED [None]
